FAERS Safety Report 15665736 (Version 1)
Quarter: 2018Q4

REPORT INFORMATION
  Report Type: Spontaneous
  Country: IT (occurrence: IT)
  Receive Date: 20181128
  Receipt Date: 20181128
  Transmission Date: 20190205
  Serious: Yes (Hospitalization)
  Sender: FDA-Public Use
  Company Number: IT-TASMAN PHARMA, INC.-2018TSM00185

PATIENT
  Age: 42 Year
  Sex: Female

DRUGS (6)
  1. VALPROIC ACID. [Suspect]
     Active Substance: VALPROIC ACID
     Dosage: 800 MG, 1X/DAY
     Route: 065
     Dates: start: 201508
  2. ZUCLOPENTIXOL [Concomitant]
     Active Substance: ZUCLOPENTHIXOL
     Dosage: 20 MG, 1X/DAY
     Route: 065
  3. NICOTINE (CIGARETTES) [Suspect]
     Active Substance: NICOTINE
     Dosage: 20 DOSAGE UNITS, 1X/DAY
     Route: 065
     Dates: end: 201508
  4. SERTRALINE [Concomitant]
     Active Substance: SERTRALINE HYDROCHLORIDE
     Dosage: 100 MG, 1X/DAY
     Route: 065
     Dates: start: 201508
  5. NICOTINE (CIGARETTES) [Suspect]
     Active Substance: NICOTINE
     Dosage: 7 TO 10 DOSAGE UNITS, 1X/DAY
     Route: 065
     Dates: start: 201508
  6. CLOZAPINE. [Suspect]
     Active Substance: CLOZAPINE
     Dosage: 400 MG, 1X/DAY
     Route: 048
     Dates: start: 2007, end: 2016

REACTIONS (4)
  - Pericardial effusion [Recovered/Resolved]
  - Pleural effusion [Recovered/Resolved]
  - Drug interaction [Recovered/Resolved]
  - Serositis [Recovered/Resolved]

NARRATIVE: CASE EVENT DATE: 2016
